FAERS Safety Report 7386783-X (Version None)
Quarter: 2011Q1

REPORT INFORMATION
  Report Type: 
  Country: None (occurrence: None)
  Receive Date: 20110331
  Receipt Date: 20110323
  Transmission Date: 20110831
  Serious: Yes (Hospitalization)
  Sender: FDA-Public Use
  Company Number: US-ELI_LILLY_AND_COMPANY-US201103006959

PATIENT
  Age: 82 Year
  Sex: Female
  Weight: 67.2 kg

DRUGS (12)
  1. PEMETREXED [Suspect]
     Indication: NON-SMALL CELL LUNG CANCER
     Dosage: 500 MG/M2, OTHER
     Route: 042
     Dates: start: 20110304
  2. CISPLATIN [Suspect]
     Indication: NON-SMALL CELL LUNG CANCER
     Dosage: 75 MG/M2, OTHER
     Route: 042
  3. VITAMIN D [Concomitant]
     Dosage: UNK UNK, WEEKLY (1/W)
  4. ONDANSETRON [Concomitant]
     Indication: NAUSEA
     Dosage: 8 MG, PRN
     Route: 048
     Dates: start: 20110101
  5. FOLIC ACID [Concomitant]
     Dosage: 10 MG, QD
     Route: 048
     Dates: start: 20110101
  6. EMEND [Concomitant]
     Dosage: UNK UNK, OTHER
     Route: 048
     Dates: start: 20110101
  7. LEVOTHYROXINE SODIUM [Concomitant]
     Dosage: 0.088 MG/KG, QD
     Route: 048
  8. DECADRON [Concomitant]
     Dosage: 4 MG, OTHER
     Route: 048
     Dates: start: 20110101
  9. PREVACID [Concomitant]
     Dosage: 30 DF, QD
     Route: 048
  10. K-DUR [Concomitant]
     Dosage: 20 MEQ, BID
     Route: 048
  11. COUMADIN [Concomitant]
     Dosage: UNK, OTHER
     Route: 048
     Dates: start: 20101201
  12. SENOKOT [Concomitant]
     Dosage: UNK UNK, BID
     Route: 048

REACTIONS (1)
  - DYSPNOEA [None]
